FAERS Safety Report 9193713 (Version 1)
Quarter: 2013Q1

REPORT INFORMATION
  Report Type: Spontaneous
  Country: US (occurrence: None)
  Receive Date: 20130325
  Receipt Date: 20130325
  Transmission Date: 20140127
  Serious: No
  Sender: FDA-Public Use
  Company Number: None

PATIENT
  Sex: 0

DRUGS (2)
  1. PRIMIDONE [Suspect]
     Route: 048
  2. PROMETHAZINE HYDROBROMIDE [Suspect]
     Route: 048

REACTIONS (5)
  - Circumstance or information capable of leading to medication error [None]
  - Product packaging issue [None]
  - Medication error [None]
  - Tablet physical issue [None]
  - Intercepted drug dispensing error [None]
